FAERS Safety Report 18917384 (Version 1)
Quarter: 2021Q1

REPORT INFORMATION
  Report Type: Report from Study
  Country: US (occurrence: US)
  Receive Date: 20210219
  Receipt Date: 20210219
  Transmission Date: 20210420
  Serious: No
  Sender: FDA-Public Use
  Company Number: US-BIOVITRUM-2021US1658

PATIENT
  Sex: Female

DRUGS (2)
  1. POLY?VI?SOL WITH IRON [Concomitant]
     Active Substance: IRON\VITAMINS
  2. SYNAGIS [Suspect]
     Active Substance: PALIVIZUMAB
     Indication: ANTIVIRAL PROPHYLAXIS
     Route: 030
     Dates: start: 20201229

REACTIONS (1)
  - Pyrexia [Recovered/Resolved]
